FAERS Safety Report 7444495-8 (Version None)
Quarter: 2011Q2

REPORT INFORMATION
  Report Type: 
  Country: None (occurrence: None)
  Receive Date: 20110429
  Receipt Date: 20110425
  Transmission Date: 20111010
  Serious: Yes (Other)
  Sender: FDA-Public Use
  Company Number: JP-ASTELLAS-2011JP002826

PATIENT
  Age: 61 Year
  Sex: Female

DRUGS (69)
  1. DIGOXIN [Concomitant]
     Dosage: 0.25 MG, UID/QD
     Route: 048
     Dates: start: 20110407
  2. ASPIRIN [Concomitant]
     Dosage: 100 MG, UID/QD
     Route: 048
     Dates: start: 20110407
  3. LORFENAMIN [Concomitant]
     Dosage: 120 MG, PRN
     Route: 048
     Dates: start: 20110417, end: 20110417
  4. LORFENAMIN [Concomitant]
     Dosage: 60 MG, PRN
     Route: 048
     Dates: start: 20110418, end: 20110418
  5. BACTRIM [Concomitant]
     Dosage: 2 DF, BID
     Route: 048
     Dates: start: 20110419, end: 20110420
  6. KAYTWO N [Concomitant]
     Dosage: 10 MG, UNKNOWN/D
     Route: 041
     Dates: start: 20110414, end: 20110414
  7. FORSENID [Concomitant]
     Dosage: 24 MG, UID/QD
     Route: 048
     Dates: start: 20110405, end: 20110405
  8. NORMAL SALINE [Concomitant]
     Dosage: 150 ML, UNKNOWN/D
     Route: 041
     Dates: start: 20110414, end: 20110414
  9. TRAUBENZUCKER [Concomitant]
     Dosage: 50 ML, UNKNOWN/D
     Route: 041
     Dates: start: 20110414, end: 20110414
  10. KN REPLACEMENT [Concomitant]
     Dosage: 1000 ML, UNKNOWN/D
     Route: 042
     Dates: start: 20110407, end: 20110408
  11. LASIX [Concomitant]
     Dosage: 120 MG, UNKNOWN/D
     Route: 048
     Dates: start: 20110401, end: 20110401
  12. METHYCOBAL [Concomitant]
     Dosage: 500 UG, TID
     Route: 048
     Dates: start: 20110401
  13. LORFENAMIN [Concomitant]
     Dosage: 60 MG, PRN
     Dates: start: 20110421
  14. MEROPENEM [Concomitant]
     Dosage: 0.5 G, UNKNOWN/D
     Route: 041
     Dates: start: 20110414, end: 20110414
  15. VANCOMYCIN HYDROCHLORIDE [Concomitant]
     Dosage: 1 G, UNKNOWN/D
     Route: 041
     Dates: start: 20110413, end: 20110413
  16. KAYTWO N [Concomitant]
     Dosage: 10 MG, UNKNOWN/D
     Route: 041
     Dates: start: 20110411, end: 20110411
  17. LASIX [Concomitant]
     Dosage: 100 MG, UNKNOWN/D
     Route: 041
     Dates: start: 20110406, end: 20110408
  18. MANNIGEN [Concomitant]
     Dosage: 200 ML, UNKNOWN/D
     Route: 041
     Dates: start: 20110406, end: 20110408
  19. NICARPINE [Concomitant]
     Dosage: 50 ML, UNKNOWN/D
     Route: 042
     Dates: start: 20110407, end: 20110407
  20. LACTEC [Concomitant]
     Dosage: 1000 ML, UNKNOWN/D
     Route: 041
     Dates: start: 20110406, end: 20110406
  21. FERROUS CITRATE [Concomitant]
     Dosage: 50 MG, BID
     Route: 048
     Dates: end: 20110412
  22. LORFENAMIN [Concomitant]
     Dosage: 60 MG, PRN
     Route: 048
     Dates: start: 20110415, end: 20110416
  23. MIYA-BM [Concomitant]
     Dosage: 1 G, TID
     Route: 048
     Dates: end: 20110406
  24. FULTANZOL [Concomitant]
     Dosage: 300 MG, UNKNOWN/D
     Route: 042
     Dates: start: 20110401, end: 20110408
  25. NORMAL SALINE [Concomitant]
     Dosage: 100 ML, UNKNOWN/D
     Route: 041
     Dates: start: 20110401, end: 20110405
  26. NORMAL SALINE [Concomitant]
     Dosage: 150 ML, UNKNOWN/D
     Route: 041
     Dates: start: 20110407, end: 20110408
  27. NORMAL SALINE [Concomitant]
     Dosage: 250 ML, UNKNOWN/D
     Route: 041
     Dates: start: 20110409, end: 20110411
  28. NICARPINE [Concomitant]
     Dosage: 30 ML, UNKNOWN/D
     Route: 042
     Dates: start: 20110406, end: 20110406
  29. XYLOCAINE [Concomitant]
     Dosage: 600 MG, UNKNOWN/D
     Route: 042
     Dates: start: 20110406, end: 20110406
  30. SIGMART [Concomitant]
     Dosage: 48 MG, UNKNOWN/D
     Route: 041
     Dates: start: 20110406, end: 20110406
  31. ULTIVA [Concomitant]
     Dosage: 6 MG, UNKNOWN/D
     Route: 041
     Dates: start: 20110406, end: 20110406
  32. POTASSIUM CHLORIDE [Concomitant]
     Dosage: 20 MEQ, UNKNOWN/D
     Route: 042
     Dates: start: 20110406, end: 20110407
  33. WARFARIN [Concomitant]
     Dosage: 1 MG, UNKNOWN/D
     Route: 048
     Dates: start: 20110407, end: 20110411
  34. WARFARIN [Concomitant]
     Dosage: 1 MG, UNKNOWN/D
     Route: 048
     Dates: start: 20110417, end: 20110420
  35. NOR-ADRENALIN [Concomitant]
     Dosage: 5 ML, UNKNOWN/D
     Route: 040
     Dates: start: 20110406, end: 20110406
  36. INOVAN [Concomitant]
     Dosage: 50 ML, UNKNOWN/D
     Route: 042
     Dates: start: 20010406, end: 20110406
  37. FUNGUARD [Suspect]
     Dosage: 150 MG, UNKNOWN/D
     Route: 041
     Dates: start: 20110409
  38. LASIX [Concomitant]
     Dosage: 40 MG, BID
     Route: 048
  39. ADETPHOS [Concomitant]
     Dosage: 100 MG, TID
     Route: 048
  40. AMOBAN [Concomitant]
     Indication: INSOMNIA
     Dosage: 7.5 MG, UID/QD
     Route: 048
     Dates: start: 20110405, end: 20110405
  41. LORFENAMIN [Concomitant]
     Dosage: 120 MG, PRN
     Route: 048
     Dates: start: 20110419, end: 20110420
  42. WARFARIN [Concomitant]
     Dosage: 1.5 MG, UNKNOWN/D
     Route: 048
     Dates: start: 20110412, end: 20110416
  43. MEXITIL [Concomitant]
     Dosage: 50 MG, TID
     Route: 048
     Dates: start: 20110409, end: 20110411
  44. MEROPENEM [Concomitant]
     Dosage: 1 G, UNKNOWN/D
     Route: 041
     Dates: end: 20110413
  45. VANCOMYCIN HYDROCHLORIDE [Concomitant]
     Dosage: 2 G, UNKNOWN/D
     Route: 041
     Dates: start: 20110406, end: 20110406
  46. VANCOMYCIN HYDROCHLORIDE [Concomitant]
     Dosage: 1 G, UNKNOWN/D
     Route: 041
     Dates: start: 20110407, end: 20110410
  47. NORMAL SALINE [Concomitant]
     Dosage: 200 ML, UNKNOWN/D
     Route: 041
     Dates: start: 20110412, end: 20110412
  48. AMARYL [Concomitant]
     Dosage: 0.5 MG, UID/QD
     Route: 048
     Dates: start: 20110405
  49. SLOW-K [Concomitant]
     Dosage: 600 MG, BID
     Route: 048
     Dates: start: 20110407
  50. PRECEDEX [Concomitant]
     Dosage: 200 UG, UNKNOWN/D
     Route: 042
     Dates: start: 20110406, end: 20110406
  51. LASIX [Concomitant]
     Dosage: 40 MG, BID
     Route: 048
     Dates: start: 20110402
  52. AMOBAN [Concomitant]
     Dosage: 7.5 MG, PRN
     Route: 048
     Dates: start: 20110407
  53. LORFENAMIN [Concomitant]
     Dosage: 60 MG, PRN
     Route: 048
     Dates: start: 20110407, end: 20110412
  54. LORFENAMIN [Concomitant]
     Dosage: 120 MG, PRN
     Route: 048
     Dates: start: 20110413, end: 20110414
  55. MEXITIL [Concomitant]
     Dosage: 100 MG, TID
     Route: 048
     Dates: start: 20110412
  56. PRAMIEL [Concomitant]
     Dosage: 5 MG, TID
     Route: 048
     Dates: start: 20110422, end: 20110425
  57. GLYCERIN [Concomitant]
     Dosage: 60 ML, UNKNOWN/D
     Route: 054
     Dates: start: 20110405, end: 20110405
  58. NORMAL SALINE [Concomitant]
     Dosage: 298 ML, UNKNOWN/D
     Route: 041
     Dates: start: 20110406, end: 20110406
  59. ROCURONIUM BROMIDE [Concomitant]
     Dosage: 150 MG, UNKNOWN/D
     Route: 041
     Dates: start: 20110406, end: 20110406
  60. PARIET [Concomitant]
     Indication: REFLUX OESOPHAGITIS
     Dosage: 10 MG, UID/QD
     Route: 048
     Dates: start: 20110407
  61. WARFARIN [Concomitant]
     Dosage: 1.5 MG, UNKNOWN/D
     Route: 048
     Dates: start: 20110421
  62. CEREKINON [Concomitant]
     Dosage: 100 MG, TID
     Route: 048
     Dates: start: 20110422, end: 20110425
  63. NORMAL SALINE [Concomitant]
     Dosage: 250 ML, UNKNOWN/D
     Route: 041
     Dates: start: 20110413, end: 20110413
  64. NORMAL SALINE [Concomitant]
     Dosage: 100 ML, UNKNOWN/D
     Route: 041
     Dates: start: 20110415
  65. TRAUBENZUCKER [Concomitant]
     Dosage: 645 ML, UNKNOWN/D
     Route: 042
     Dates: start: 20110406, end: 20110406
  66. ZANTAC [Concomitant]
     Dosage: 100 MG, UNKNOWN/D
     Route: 041
     Dates: start: 20110406, end: 20110406
  67. NOVOLIN 70/30 [Concomitant]
     Dosage: 50 U, UNKNOWN/D
     Route: 042
     Dates: start: 20110406, end: 20110406
  68. FENTANYL [Concomitant]
     Dosage: 1.2 MG, UNKNOWN/D
     Route: 041
     Dates: start: 20110406, end: 20110406
  69. GLUCOSE INJECTION [Concomitant]
     Dosage: 100 ML, UNKNOWN/D
     Route: 042
     Dates: start: 20110406, end: 20110407

REACTIONS (1)
  - INTERNATIONAL NORMALISED RATIO INCREASED [None]
